FAERS Safety Report 8436087-9 (Version None)
Quarter: 2012Q2

REPORT INFORMATION
  Report Type: 
  Country: None (occurrence: None)
  Receive Date: 20120607
  Receipt Date: 20120607
  Transmission Date: 20120825
  Serious: Yes (Hospitalization)
  Sender: FDA-Public Use
  Company Number: None

PATIENT
  Age: 64 Year
  Sex: Female
  Weight: 54.43 kg

DRUGS (2)
  1. VENOFER [Suspect]
     Indication: IRON DEFICIENCY
     Dosage: 500 MG/25 ML ONCE IV DRIP
     Route: 041
  2. VENOFER [Suspect]
     Indication: IRON DEFICIENCY ANAEMIA
     Dosage: 25 MG/1.25 ML ONCE IV AT ONCE
     Route: 042

REACTIONS (8)
  - PARAESTHESIA [None]
  - ANXIETY [None]
  - DIZZINESS [None]
  - DYSPNOEA [None]
  - COUGH [None]
  - WHEEZING [None]
  - RESPIRATORY DISTRESS [None]
  - HYPERVENTILATION [None]
